FAERS Safety Report 18664599 (Version 4)
Quarter: 2021Q2

REPORT INFORMATION
  Report Type: Spontaneous
  Country: GB (occurrence: GB)
  Receive Date: 20201225
  Receipt Date: 20210625
  Transmission Date: 20210717
  Serious: Yes (Other)
  Sender: FDA-Public Use
  Company Number: GB-BIOVITRUM-2020GB7891

PATIENT
  Age: 68 Year
  Sex: Male

DRUGS (83)
  1. ORFADIN [Suspect]
     Active Substance: NITISINONE
     Dates: start: 2018
  2. DIHYDROCODEINE [Concomitant]
     Active Substance: DIHYDROCODEINE
     Dates: start: 2013
  3. TOSTRAN [Concomitant]
     Active Substance: TESTOSTERONE
     Dates: start: 2017
  4. TOSTRAN [Concomitant]
     Active Substance: TESTOSTERONE
     Dates: start: 2019
  5. LANSOPRAZOLE. [Concomitant]
     Active Substance: LANSOPRAZOLE
     Dates: start: 2013
  6. NAPROXEN. [Concomitant]
     Active Substance: NAPROXEN
     Dates: start: 2017
  7. NAPROXEN. [Concomitant]
     Active Substance: NAPROXEN
     Dates: start: 2018
  8. MOVICOL [Concomitant]
     Active Substance: POLYETHYLENE GLYCOL 3350\POTASSIUM CHLORIDE\SODIUM BICARBONATE\SODIUM CHLORIDE
     Dates: start: 2013
  9. MOVICOL [Concomitant]
     Active Substance: POLYETHYLENE GLYCOL 3350\POTASSIUM CHLORIDE\SODIUM BICARBONATE\SODIUM CHLORIDE
     Dates: start: 2014
  10. PRO ZERO [Concomitant]
     Dates: start: 2013
  11. PRO ZERO [Concomitant]
     Dates: start: 2015
  12. RISEDRONATE [Concomitant]
     Active Substance: RISEDRONATE SODIUM
     Dates: start: 2015
  13. RAMIPRIL. [Concomitant]
     Active Substance: RAMIPRIL
     Dates: start: 2014
  14. ADCAL D3 [Concomitant]
     Active Substance: CALCIUM CARBONATE\CHOLECALCIFEROL
     Dates: start: 2017
  15. KIRIN [Concomitant]
     Dates: start: 2017
  16. KIRIN [Concomitant]
     Dates: start: 2018
  17. DIHYDROCODEINE [Concomitant]
     Active Substance: DIHYDROCODEINE
     Dates: start: 2014
  18. DIHYDROCODEINE [Concomitant]
     Active Substance: DIHYDROCODEINE
     Dates: start: 2019
  19. LANSOPRAZOLE. [Concomitant]
     Active Substance: LANSOPRAZOLE
     Dates: start: 2017
  20. RAMIPRIL. [Concomitant]
     Active Substance: RAMIPRIL
     Dosage: 5M
     Dates: start: 2016
  21. ADCAL D3 [Concomitant]
     Active Substance: CALCIUM CARBONATE\CHOLECALCIFEROL
     Dates: start: 2016
  22. MACROGOL [Concomitant]
     Active Substance: POLYETHYLENE GLYCOLS
     Dates: start: 2018
  23. APIXABAN [Concomitant]
     Active Substance: APIXABAN
     Dates: start: 2016
  24. APIXABAN [Concomitant]
     Active Substance: APIXABAN
     Dates: start: 2017
  25. BISOPROLOL [Concomitant]
     Active Substance: BISOPROLOL
     Dates: start: 2017
  26. DICLOFENAC [Concomitant]
     Active Substance: DICLOFENAC
     Dates: start: 2012
  27. DIHYDROCODEINE [Concomitant]
     Active Substance: DIHYDROCODEINE
     Dates: start: 2017
  28. TOSTRAN [Concomitant]
     Active Substance: TESTOSTERONE
     Dates: start: 2016
  29. QUININE SULFATE. [Concomitant]
     Active Substance: QUININE SULFATE
     Dates: start: 2015
  30. QUININE SULFATE. [Concomitant]
     Active Substance: QUININE SULFATE
     Dates: start: 2019
  31. ADCAL D3 [Concomitant]
     Active Substance: CALCIUM CARBONATE\CHOLECALCIFEROL
     Dates: start: 2018
  32. APIXABAN [Concomitant]
     Active Substance: APIXABAN
     Dates: start: 2019
  33. BISOPROLOL [Concomitant]
     Active Substance: BISOPROLOL
     Dates: start: 2019
  34. DENOSUMAB [Concomitant]
     Active Substance: DENOSUMAB
     Dates: start: 2018
  35. DIHYDROCODEINE [Concomitant]
     Active Substance: DIHYDROCODEINE
     Dates: start: 2018
  36. TOSTRAN [Concomitant]
     Active Substance: TESTOSTERONE
     Dates: start: 2013
  37. TOSTRAN [Concomitant]
     Active Substance: TESTOSTERONE
     Dates: start: 2018
  38. NAPROXEN. [Concomitant]
     Active Substance: NAPROXEN
     Dates: start: 2015
  39. NAPROXEN. [Concomitant]
     Active Substance: NAPROXEN
     Dates: start: 2016
  40. ADCAL D3 [Concomitant]
     Active Substance: CALCIUM CARBONATE\CHOLECALCIFEROL
     Dates: start: 2015
  41. ADCAL D3 [Concomitant]
     Active Substance: CALCIUM CARBONATE\CHOLECALCIFEROL
     Dates: start: 2019
  42. DENOSUMAB [Concomitant]
     Active Substance: DENOSUMAB
     Dates: start: 2019
  43. DIHYDROCODEINE [Concomitant]
     Active Substance: DIHYDROCODEINE
     Dates: start: 2014
  44. NAPROXEN. [Concomitant]
     Active Substance: NAPROXEN
     Dates: start: 2013
  45. RISEDRONATE [Concomitant]
     Active Substance: RISEDRONATE SODIUM
     Dates: start: 2016
  46. RAMIPRIL. [Concomitant]
     Active Substance: RAMIPRIL
     Dates: start: 2015
  47. QUININE SULFATE. [Concomitant]
     Active Substance: QUININE SULFATE
     Dates: start: 2017
  48. MACROGOL [Concomitant]
     Active Substance: POLYETHYLENE GLYCOLS
     Dates: start: 2017
  49. APIXABAN [Concomitant]
     Active Substance: APIXABAN
     Dates: start: 2018
  50. ORFADIN [Suspect]
     Active Substance: NITISINONE
     Dates: start: 2015
  51. ORFADIN [Suspect]
     Active Substance: NITISINONE
     Dates: start: 2016
  52. ORFADIN [Suspect]
     Active Substance: NITISINONE
     Dates: start: 2017
  53. ORFADIN [Suspect]
     Active Substance: NITISINONE
     Dates: start: 2019
  54. LANSOPRAZOLE. [Concomitant]
     Active Substance: LANSOPRAZOLE
     Dates: start: 2014
  55. LANSOPRAZOLE. [Concomitant]
     Active Substance: LANSOPRAZOLE
     Dates: start: 2015
  56. LANSOPRAZOLE. [Concomitant]
     Active Substance: LANSOPRAZOLE
     Dates: start: 2016
  57. LANSOPRAZOLE. [Concomitant]
     Active Substance: LANSOPRAZOLE
     Dates: start: 2018
  58. PRO ZERO [Concomitant]
     Dates: start: 2014
  59. RISEDRONATE [Concomitant]
     Active Substance: RISEDRONATE SODIUM
     Dates: start: 2013
  60. RAMIPRIL. [Concomitant]
     Active Substance: RAMIPRIL
     Dates: start: 2017
  61. MACROGOL [Concomitant]
     Active Substance: POLYETHYLENE GLYCOLS
     Dates: start: 2015
  62. MACROGOL [Concomitant]
     Active Substance: POLYETHYLENE GLYCOLS
     Dates: start: 2016
  63. ORFADIN [Suspect]
     Active Substance: NITISINONE
     Indication: ALKAPTONURIA
     Dates: start: 2012
  64. ORFADIN [Suspect]
     Active Substance: NITISINONE
     Dates: start: 2013
  65. OMEPRAZOLE. [Concomitant]
     Active Substance: OMEPRAZOLE
     Dates: start: 2012
  66. DIHYDROCODEINE [Concomitant]
     Active Substance: DIHYDROCODEINE
     Dates: start: 2012
  67. DIHYDROCODEINE [Concomitant]
     Active Substance: DIHYDROCODEINE
     Dates: start: 2016
  68. ANUSOL NOS [Concomitant]
     Active Substance: BALSAM PERU\BENZYL BENZOATE\BISMUTH HYDROXIDE\BISMUTH SUBGALLATE\HYDROCORTISONE ACETATE\ZINC OXIDE
     Dates: start: 2012
  69. TOSTRAN [Concomitant]
     Active Substance: TESTOSTERONE
     Dates: start: 2012
  70. TOSTRAN [Concomitant]
     Active Substance: TESTOSTERONE
     Dates: start: 2014
  71. RISEDRONATE [Concomitant]
     Active Substance: RISEDRONATE SODIUM
     Dates: start: 2014
  72. RAMIPRIL. [Concomitant]
     Active Substance: RAMIPRIL
     Dates: start: 2018
  73. RAMIPRIL. [Concomitant]
     Active Substance: RAMIPRIL
     Dates: start: 2019
  74. QUININE SULFATE. [Concomitant]
     Active Substance: QUININE SULFATE
     Dates: start: 2016
  75. ORFADIN [Suspect]
     Active Substance: NITISINONE
     Dates: start: 2014
  76. SUDOCREAM [Concomitant]
     Dates: start: 2012
  77. DIHYDROCODEINE [Concomitant]
     Active Substance: DIHYDROCODEINE
     Dates: start: 2015
  78. TOSTRAN [Concomitant]
     Active Substance: TESTOSTERONE
     Dates: start: 2015
  79. LANSOPRAZOLE. [Concomitant]
     Active Substance: LANSOPRAZOLE
     Dates: start: 2019
  80. NAPROXEN. [Concomitant]
     Active Substance: NAPROXEN
     Dates: start: 2014
  81. QUININE SULFATE. [Concomitant]
     Active Substance: QUININE SULFATE
     Dates: start: 2018
  82. BISOPROLOL [Concomitant]
     Active Substance: BISOPROLOL
     Dates: start: 2018
  83. DENOSUMAB [Concomitant]
     Active Substance: DENOSUMAB
     Dates: start: 2017

REACTIONS (5)
  - Meibomian gland dysfunction [Not Recovered/Not Resolved]
  - Lenticular opacities [Not Recovered/Not Resolved]
  - Visual impairment [Not Recovered/Not Resolved]
  - Cataract cortical [Unknown]
  - Amino acid level increased [Not Recovered/Not Resolved]

NARRATIVE: CASE EVENT DATE: 2013
